FAERS Safety Report 20486782 (Version 1)
Quarter: 2022Q1

REPORT INFORMATION
  Report Type: Spontaneous
  Country: US (occurrence: US)
  Receive Date: 20220217
  Receipt Date: 20220217
  Transmission Date: 20220423
  Serious: No
  Sender: FDA-Public Use
  Company Number: US-MYLANLABS-2022M1011491

PATIENT
  Sex: Female
  Weight: 49.9 kg

DRUGS (1)
  1. XULANE [Suspect]
     Active Substance: ETHINYL ESTRADIOL\NORELGESTROMIN
     Indication: Contraception
     Dosage: 150/35 MICROGRAM, QD
     Route: 062
     Dates: start: 20220123

REACTIONS (4)
  - Application site eczema [Unknown]
  - Anaemia [Unknown]
  - Product adhesion issue [Unknown]
  - Wrong technique in product usage process [Unknown]
